FAERS Safety Report 7908395-9 (Version None)
Quarter: 2011Q4

REPORT INFORMATION
  Report Type: 
  Country: None (occurrence: None)
  Receive Date: 20111111
  Receipt Date: 20111103
  Transmission Date: 20120403
  Serious: Yes (Hospitalization)
  Sender: FDA-Public Use
  Company Number: US-JNJFOC-20111102348

PATIENT
  Sex: Female

DRUGS (8)
  1. LIPITOR [Concomitant]
     Indication: BLOOD CHOLESTEROL INCREASED
     Route: 065
  2. NORVASC [Concomitant]
     Indication: CORONARY ARTERY DISEASE
     Route: 065
  3. FENTANYL-100 [Suspect]
     Indication: ARTHRALGIA
     Dosage: 100+ 75 UG/HR
     Route: 062
     Dates: start: 20040101, end: 20040101
  4. ELAVIL [Concomitant]
     Indication: ANXIETY
     Route: 065
  5. CLONAZEPAM [Concomitant]
     Indication: ANXIETY
     Route: 065
  6. ASPIRIN [Concomitant]
     Indication: CORONARY ARTERY DISEASE
     Route: 065
  7. SYNTHROID [Concomitant]
     Indication: THYROID CYST
     Route: 065
  8. IMDUR [Concomitant]
     Indication: CORONARY ARTERY DISEASE
     Route: 065

REACTIONS (2)
  - ELECTROCARDIOGRAM ABNORMAL [None]
  - CHEST PAIN [None]
